FAERS Safety Report 9499078 (Version 1)
Quarter: 2013Q3

REPORT INFORMATION
  Report Type: Spontaneous
  Country: GB (occurrence: GB)
  Receive Date: 20130904
  Receipt Date: 20130904
  Transmission Date: 20140515
  Serious: Yes (Disabling)
  Sender: FDA-Public Use
  Company Number: GB-ACTAVIS-2013-15490

PATIENT
  Age: 59 Year
  Sex: Male

DRUGS (1)
  1. GEMCITABINE (UNKNOWN) [Suspect]
     Indication: PANCREATIC CARCINOMA
     Dosage: 1000 MILLIGRAM(S)/SQ. METER
     Route: 042
     Dates: start: 20121030, end: 20130327

REACTIONS (1)
  - Thrombotic microangiopathy [Unknown]
